FAERS Safety Report 25859416 (Version 2)
Quarter: 2025Q4

REPORT INFORMATION
  Report Type: Spontaneous
  Country: TR (occurrence: TR)
  Receive Date: 20250929
  Receipt Date: 20251010
  Transmission Date: 20260118
  Serious: Yes (Hospitalization)
  Sender: NOVO NORDISK
  Company Number: TR-NOVOPROD-1527351

PATIENT
  Sex: Female
  Weight: 3.6 kg

DRUGS (4)
  1. NOVORAPID [Suspect]
     Active Substance: INSULIN ASPART
     Indication: Gestational diabetes
     Dosage: 6 IU, TID
     Route: 064
  2. LEVEMIR [Suspect]
     Active Substance: INSULIN DETEMIR
     Indication: Gestational diabetes
     Dosage: 10 IU, QD
     Route: 064
  3. OKSAPAR [Concomitant]
     Indication: Product used for unknown indication
     Dosage: UNK
     Route: 064
  4. VITAMINS [Concomitant]
     Active Substance: VITAMINS
     Indication: Product used for unknown indication
     Dosage: UNK
     Route: 064

REACTIONS (2)
  - Palpitations [Recovered/Resolved]
  - Foetal exposure during pregnancy [Recovered/Resolved]
